FAERS Safety Report 21211497 (Version 3)
Quarter: 2023Q1

REPORT INFORMATION
  Report Type: Spontaneous
  Country: CA (occurrence: CA)
  Receive Date: 20220815
  Receipt Date: 20230104
  Transmission Date: 20230417
  Serious: Yes (Hospitalization)
  Sender: FDA-Public Use
  Company Number: CA-CELLTRION INC.-2022CA012327

PATIENT

DRUGS (6)
  1. INFLECTRA [Suspect]
     Active Substance: INFLIXIMAB-DYYB
     Indication: Colitis ulcerative
     Dosage: 400 MG,Q 0, 2, 6, THEN EVERY 8 WEEKSNOT YET STARTED
     Route: 042
  2. INFLECTRA [Suspect]
     Active Substance: INFLIXIMAB-DYYB
     Dosage: 400 MG,Q 0, 2, 6, THEN EVERY 8 WEEKS
     Route: 042
     Dates: start: 20220721
  3. INFLECTRA [Suspect]
     Active Substance: INFLIXIMAB-DYYB
     Dosage: 400 MG,Q 0, 2, 6, THEN EVERY 8 WEEKS
     Route: 042
     Dates: start: 20220804
  4. INFLECTRA [Suspect]
     Active Substance: INFLIXIMAB-DYYB
     Dosage: 400 MG,Q 0, 2, 6, THEN EVERY 8 WEEKS
     Route: 042
     Dates: start: 20221223
  5. ASACOL [Concomitant]
     Active Substance: MESALAMINE
     Dosage: UNK
  6. PREDNISONE [Concomitant]
     Active Substance: PREDNISONE
     Dosage: 1 DF,DOSAGE INFO: UNKNOWN
     Route: 065
     Dates: start: 20220706

REACTIONS (3)
  - Condition aggravated [Unknown]
  - Off label use [Unknown]
  - Intentional product use issue [Unknown]

NARRATIVE: CASE EVENT DATE: 20220101
